FAERS Safety Report 9324081 (Version 3)
Quarter: 2013Q3

REPORT INFORMATION
  Report Type: Spontaneous
  Country: US (occurrence: US)
  Receive Date: 20130603
  Receipt Date: 20130709
  Transmission Date: 20140515
  Serious: Yes (Hospitalization, Other)
  Sender: FDA-Public Use
  Company Number: PHEH2013US011662

PATIENT
  Sex: Female
  Weight: 62.59 kg

DRUGS (4)
  1. GILENYA [Suspect]
     Indication: MULTIPLE SCLEROSIS
     Dosage: 0.5 MG, QD
     Route: 048
  2. VIT D [Concomitant]
     Dosage: 60000 U, BID
  3. PROZAC [Concomitant]
     Dosage: 20 MG, UNK
  4. ADDERALL [Concomitant]

REACTIONS (9)
  - Immune thrombocytopenic purpura [Unknown]
  - Thrombocytopenia [Unknown]
  - Contusion [Unknown]
  - Rash [Unknown]
  - Antinuclear antibody positive [Unknown]
  - Blood blister [Recovered/Resolved]
  - Arthritis [Unknown]
  - Arthralgia [Unknown]
  - Joint swelling [Unknown]
